FAERS Safety Report 7035511-6 (Version None)
Quarter: 2010Q4

REPORT INFORMATION
  Report Type: 
  Country: None (occurrence: None)
  Receive Date: 20101008
  Receipt Date: 20101006
  Transmission Date: 20110411
  Serious: Yes (Hospitalization, Disabling)
  Sender: FDA-Public Use
  Company Number: JP-PFIZER INC-2010121928

PATIENT
  Age: 53 Year
  Sex: Female
  Weight: 63.5 kg

DRUGS (6)
  1. UNASYN [Suspect]
     Indication: INFECTION
     Dosage: 3 G, 2X/DAY
     Route: 042
     Dates: start: 20100924, end: 20100925
  2. VOLTAREN [Suspect]
     Indication: PYREXIA
     Dosage: 12.5 MG, 1X/DAY
     Route: 054
     Dates: start: 20100924, end: 20100927
  3. KAYTWO [Concomitant]
  4. SOLITA T [Concomitant]
  5. VEEN D [Concomitant]
  6. RESTAMIN [Concomitant]

REACTIONS (2)
  - ORAL MUCOSAL ERUPTION [None]
  - RASH [None]
